FAERS Safety Report 22394597 (Version 1)
Quarter: 2023Q2

REPORT INFORMATION
  Report Type: Spontaneous
  Country: AU (occurrence: AU)
  Receive Date: 20230601
  Receipt Date: 20230601
  Transmission Date: 20230722
  Serious: Yes (Hospitalization)
  Sender: FDA-Public Use
  Company Number: AU-SA-2023SA163656

PATIENT
  Age: 82 Year
  Sex: Male

DRUGS (1)
  1. DUPILUMAB [Suspect]
     Active Substance: DUPILUMAB
     Indication: Dermatitis atopic
     Dosage: UNK
     Dates: start: 202108, end: 202109

REACTIONS (5)
  - Dermatitis psoriasiform [Recovering/Resolving]
  - Pustular psoriasis [Recovering/Resolving]
  - Rash pustular [Recovering/Resolving]
  - Subcorneal pustular dermatosis [Recovering/Resolving]
  - Skin papilloma [Recovering/Resolving]
